FAERS Safety Report 6710279-9 (Version None)
Quarter: 2010Q2

REPORT INFORMATION
  Report Type: 
  Country: None (occurrence: None)
  Receive Date: 20100430
  Receipt Date: 20100416
  Transmission Date: 20101027
  Serious: Yes (Other)
  Sender: FDA-Public Use
  Company Number: 010685

PATIENT
  Age: 39 Year
  Sex: Female

DRUGS (3)
  1. VIMPAT [Suspect]
     Indication: PARTIAL SEIZURES
     Dosage: MAXIMUM DOSE: 50 MG; INCREASE OF 50 MG/WEEK
     Dates: start: 20090121, end: 20090301
  2. CARBAMAZEPINE [Concomitant]
  3. LAMOTRIGINE [Concomitant]

REACTIONS (4)
  - DEPRESSED LEVEL OF CONSCIOUSNESS [None]
  - FEELING DRUNK [None]
  - NAUSEA [None]
  - VERTIGO [None]
